FAERS Safety Report 12621444 (Version 1)
Quarter: 2016Q3

REPORT INFORMATION
  Report Type: Spontaneous
  Country: DE (occurrence: DE)
  Receive Date: 20160804
  Receipt Date: 20160804
  Transmission Date: 20161109
  Serious: Yes (Congenital Anomaly, Other)
  Sender: FDA-Public Use
  Company Number: DE-DRREDDYS-GER/GER/16/0081875

PATIENT
  Age: 0 Year
  Sex: Female
  Weight: 3.07 kg

DRUGS (5)
  1. FOLIO [Concomitant]
     Active Substance: FOLIC ACID
     Indication: PROPHYLAXIS OF NEURAL TUBE DEFECT
     Route: 064
     Dates: start: 20141217, end: 20150821
  2. OMEPRAZOLE. [Concomitant]
     Active Substance: OMEPRAZOLE
     Indication: DYSPEPSIA
     Dosage: 20 (MG/D )/ IF REQUIRED
     Route: 064
  3. DIMENHYDRINATE. [Concomitant]
     Active Substance: DIMENHYDRINATE
     Indication: VOMITING IN PREGNANCY
     Route: 064
  4. RENNIE [Concomitant]
     Active Substance: MAGNESIUM CARBONATE
     Indication: DYSPEPSIA
     Dosage: 6 X PER DIE
     Route: 064
  5. CITALOPRAM [Suspect]
     Active Substance: CITALOPRAM HYDROBROMIDE
     Indication: DEPRESSION
     Route: 064

REACTIONS (5)
  - Presbyacusis [Not Recovered/Not Resolved]
  - Ventricular septal defect [Not Recovered/Not Resolved]
  - Dysmorphism [Unknown]
  - Foetal exposure during pregnancy [Not Recovered/Not Resolved]
  - Aortic valve incompetence [Not Recovered/Not Resolved]
